FAERS Safety Report 4344366-X (Version None)
Quarter: 2004Q2

REPORT INFORMATION
  Report Type: 
  Country: None (occurrence: None)
  Receive Date: 20040419
  Receipt Date: 20040406
  Transmission Date: 20050107
  Serious: Yes (Hospitalization)
  Sender: FDA-Public Use
  Company Number: 2004203450JP

PATIENT
  Age: 13 Year
  Sex: Male
  Weight: 35.8 kg

DRUGS (11)
  1. GENOTROPIN [Suspect]
     Indication: HYPOPITUITARISM
     Dosage: SEE IMAGE
     Route: 058
     Dates: start: 20020917, end: 20030411
  2. GENOTROPIN [Suspect]
     Indication: HYPOPITUITARISM
     Dosage: SEE IMAGE
     Route: 058
     Dates: start: 20030412
  3. MINOMYCIN [Concomitant]
  4. ASTOMIN (DIMEMORFAN PHOSPHATE) [Concomitant]
  5. DIPYRIDAMOLE [Concomitant]
  6. MUCODYNE [Concomitant]
  7. CLARITHROMYCIN [Concomitant]
  8. RIKAVERIN [Concomitant]
  9. PROCATEROL HCL [Concomitant]
  10. HUSCODE (METHYEPHEDRINE HYDROCHLIORIDE) [Concomitant]
  11. PRANLUKAST (PRANLUKAST) [Concomitant]

REACTIONS (12)
  - C-REACTIVE PROTEIN INCREASED [None]
  - COUGH [None]
  - CSF MYELIN BASIC PROTEIN INCREASED [None]
  - CSF TEST ABNORMAL [None]
  - DRUG INEFFECTIVE [None]
  - DYSKINESIA [None]
  - GASTROENTERITIS ESCHERICHIA COLI [None]
  - HYPERREFLEXIA [None]
  - HYPOAESTHESIA [None]
  - NAUSEA [None]
  - NERVOUSNESS [None]
  - TREMOR [None]
